FAERS Safety Report 7348283-2 (Version None)
Quarter: 2011Q1

REPORT INFORMATION
  Report Type: 
  Country: None (occurrence: None)
  Receive Date: 20110311
  Receipt Date: 20110311
  Transmission Date: 20110831
  Serious: Yes (Other)
  Sender: FDA-Public Use
  Company Number: US-PFIZER INC-2009175768

PATIENT
  Sex: Female
  Weight: 95.238 kg

DRUGS (4)
  1. ADIPEX [Concomitant]
     Dosage: 37.5 MG, 1X/DAY
  2. CHANTIX [Suspect]
     Indication: SMOKING CESSATION THERAPY
     Dosage: 1 MG, 2X/DAY
     Dates: start: 20080514
  3. CHANTIX [Suspect]
     Indication: TOBACCO ABUSE
  4. VALTREX [Concomitant]
     Dosage: 500 MG, 1X/DAY
     Route: 048

REACTIONS (1)
  - LOSS OF CONSCIOUSNESS [None]
